FAERS Safety Report 22540007 (Version 1)
Quarter: 2023Q2

REPORT INFORMATION
  Report Type: Spontaneous
  Country: US (occurrence: US)
  Receive Date: 20230609
  Receipt Date: 20230609
  Transmission Date: 20230722
  Serious: Yes (Death)
  Sender: FDA-Public Use
  Company Number: US-SAGENT PHARMACEUTICALS-2023SAG000100

PATIENT

DRUGS (10)
  1. FLUDARABINE PHOSPHATE [Suspect]
     Active Substance: FLUDARABINE PHOSPHATE
     Indication: B-cell type acute leukaemia
     Dosage: UNK
     Route: 065
  2. METHOTREXATE [Suspect]
     Active Substance: METHOTREXATE
     Indication: B-cell type acute leukaemia
     Dosage: ON EVEN-NUMBERED CYCLES (2, 4, 6, AND 8) 250 MG/M2 INTRAVENOUSLY ON DAY 1
     Route: 042
  3. BUSULFAN [Suspect]
     Active Substance: BUSULFAN
     Indication: B-cell type acute leukaemia
     Dosage: UNK
  4. CYCLOPHOSPHAMIDE [Suspect]
     Active Substance: CYCLOPHOSPHAMIDE
     Indication: B-cell type acute leukaemia
     Dosage: ON ODD NUMBERED CYCLES (1, 3, 5, AND 7) 150 MG/M2 EVERY 12 H ON DAYS 1?3)
     Route: 042
  5. VINCRISTINE [Suspect]
     Active Substance: VINCRISTINE
     Indication: B-cell type acute leukaemia
     Dosage: ON ODD NUMBERED CYCLES (1, 3, 5, AND 7) 2 MILLIGRAM FLAT DOSE 2 MG FLAT DOSE WAS ADMINISTERED ON DAY
     Route: 042
  6. DEXAMETHASONE [Suspect]
     Active Substance: DEXAMETHASONE
     Indication: B-cell type acute leukaemia
     Dosage: ON ODD NUMBERED CYCLES (1, 3, 5, AND 7) 20 MG PER DAY ON DAYS 1-4 AND 11-14
     Route: 065
  7. CYTARABINE [Suspect]
     Active Substance: CYTARABINE
     Indication: B-cell type acute leukaemia
     Dosage: ON EVEN-NUMBERED CYCLES (2, 4, 6, AND 8) 500 MG/M2 EVERY 12 H ON DAYS 2 AND 3
     Route: 042
  8. INOTUZUMAB OZOGAMICIN [Suspect]
     Active Substance: INOTUZUMAB OZOGAMICIN
     Indication: B-cell type acute leukaemia
     Dosage: IN CYCLE 1 AND CYCLES 2-4 AT A CUMULATIVE DOSE OF 5.7 MG/M2
     Route: 042
  9. PEGFILGRASTIM [Concomitant]
     Active Substance: PEGFILGRASTIM
     Indication: Product used for unknown indication
     Dosage: 6 MG WAS GIVEN AFTER COMPLETION OF EACH MINI-HYPER-CVD CHEMOTHERAPY COURSE
     Route: 058
  10. URSODIOL [Concomitant]
     Active Substance: URSODIOL
     Indication: Product used for unknown indication
     Dosage: 300 MILLIGRAM, TID
     Route: 048

REACTIONS (1)
  - Venoocclusive liver disease [Fatal]
